FAERS Safety Report 15557874 (Version 1)
Quarter: 2018Q4

REPORT INFORMATION
  Report Type: Spontaneous
  Country: US (occurrence: US)
  Receive Date: 20181027
  Receipt Date: 20181027
  Transmission Date: 20190205
  Serious: Yes (Hospitalization)
  Sender: FDA-Public Use
  Company Number: US-009507513-1810USA007710

PATIENT
  Age: 64 Year
  Sex: Male

DRUGS (6)
  1. ELIQUIS [Suspect]
     Active Substance: APIXABAN
     Dosage: 2.5 MG, BID (AT 06:00 AND 18:00)
     Route: 048
     Dates: end: 20170509
  2. LIPITOR [Suspect]
     Active Substance: ATORVASTATIN CALCIUM
     Dosage: 80 MG, QD (AT HOUR OF SLEEP; LAST TAKEN: 08-MAY-2017 20:19)
     Route: 048
     Dates: end: 20170508
  3. PLAVIX [Suspect]
     Active Substance: CLOPIDOGREL BISULFATE
     Dosage: UNK
     Route: 048
  4. ASPIRIN. [Suspect]
     Active Substance: ASPIRIN
     Dosage: UNK
     Route: 065
  5. ZETIA [Suspect]
     Active Substance: EZETIMIBE
     Dosage: UNK
     Route: 065
  6. METOPROLOL TARTRATE. [Suspect]
     Active Substance: METOPROLOL TARTRATE
     Dosage: 200 MG, QD (LAST TAKEN: 01-MAY-2017 AT 08:12 100 MG )
     Route: 048
     Dates: end: 20170501

REACTIONS (2)
  - Atrial fibrillation [Unknown]
  - Chest pain [Unknown]
